FAERS Safety Report 16811960 (Version 1)
Quarter: 2019Q3

REPORT INFORMATION
  Report Type: Spontaneous
  Country: US (occurrence: US)
  Receive Date: 20190916
  Receipt Date: 20190916
  Transmission Date: 20191005
  Serious: Yes (Hospitalization)
  Sender: FDA-Public Use
  Company Number: US-VIRTUS PHARMACEUTICALS, LLC-2019VTS00050

PATIENT
  Age: 34 Year
  Sex: Male

DRUGS (2)
  1. ALBUTEROL. [Suspect]
     Active Substance: ALBUTEROL
     Indication: ASTHMA
     Dosage: UNK, 5-6X/DAY
  2. UNSPECIFIED STEROIDS [Suspect]
     Active Substance: UNSPECIFIED INGREDIENT
     Indication: ASTHMA
     Route: 048

REACTIONS (2)
  - Thyrotoxic periodic paralysis [Recovered/Resolved]
  - Acute respiratory failure [Recovered/Resolved]
